FAERS Safety Report 20891354 (Version 2)
Quarter: 2022Q2

REPORT INFORMATION
  Report Type: Spontaneous
  Country: US (occurrence: US)
  Receive Date: 20220530
  Receipt Date: 20220616
  Transmission Date: 20220721
  Serious: Yes (Other)
  Sender: FDA-Public Use
  Company Number: US-TEVA-2022-US-2040381

PATIENT
  Age: 72 Year
  Sex: Female

DRUGS (3)
  1. LORAZEPAM [Suspect]
     Active Substance: LORAZEPAM
     Indication: Anxiety
  2. LORAZEPAM [Suspect]
     Active Substance: LORAZEPAM
  3. PREDNISONE [Suspect]
     Active Substance: PREDNISONE
     Indication: Pneumonia

REACTIONS (14)
  - Hallucination [Unknown]
  - Wrong technique in product usage process [Unknown]
  - Headache [Unknown]
  - Nausea [Unknown]
  - Tinnitus [Unknown]
  - Palpitations [Unknown]
  - Withdrawal syndrome [Unknown]
  - Incorrect dose administered [Unknown]
  - Fatigue [Unknown]
  - Abnormal dreams [Not Recovered/Not Resolved]
  - Poor quality sleep [Not Recovered/Not Resolved]
  - Dizziness [Not Recovered/Not Resolved]
  - Confusional state [Not Recovered/Not Resolved]
  - Therapeutic product effect incomplete [Unknown]
